FAERS Safety Report 19065413 (Version 1)
Quarter: 2021Q1

REPORT INFORMATION
  Report Type: Spontaneous
  Country: US (occurrence: US)
  Receive Date: 20210327
  Receipt Date: 20210327
  Transmission Date: 20210420
  Serious: Yes (Other)
  Sender: FDA-Public Use
  Company Number: US-SHILPA MEDICARE LIMITED-SML-US-2021-00312

PATIENT
  Age: 81 Year
  Sex: Male

DRUGS (4)
  1. GEMCITABINE. [Suspect]
     Active Substance: GEMCITABINE
     Dosage: ON DAYS 1 AND 8 OF A 21?DAY CYCLE.
     Route: 065
  2. NAB?PACLITAXEL [Suspect]
     Active Substance: PACLITAXEL
     Indication: PANCREATIC CARCINOMA
     Route: 065
  3. GEMCITABINE. [Suspect]
     Active Substance: GEMCITABINE
     Indication: PANCREATIC CARCINOMA
     Dosage: ON DAYS 1, 8, AND 15 OF A 28?DAY CYCLE
     Route: 065
  4. NAB?PACLITAXEL [Suspect]
     Active Substance: PACLITAXEL
     Dosage: ON DAYS 1 AND 8 OF A 21?DAY CYCLE.
     Route: 065

REACTIONS (6)
  - Metastases to liver [Unknown]
  - Disease progression [Unknown]
  - General physical health deterioration [Unknown]
  - Lymphadenopathy [Unknown]
  - Oedema peripheral [Unknown]
  - Drug intolerance [Unknown]
